FAERS Safety Report 10481103 (Version 1)
Quarter: 2014Q3

REPORT INFORMATION
  Report Type: Spontaneous
  Country: AU (occurrence: AU)
  Receive Date: 20140929
  Receipt Date: 20140929
  Transmission Date: 20150326
  Serious: Yes (Other)
  Sender: FDA-Public Use
  Company Number: AU-ASTRAZENECA-2014SE71509

PATIENT
  Age: 51 Year
  Sex: Female

DRUGS (6)
  1. ATACAND PLUS [Suspect]
     Active Substance: CANDESARTAN CILEXETIL\HYDROCHLOROTHIAZIDE
     Dosage: 16/12.5
     Route: 048
  2. COVERSYL [Concomitant]
     Active Substance: PERINDOPRIL
  3. METHOTREXATE [Concomitant]
     Active Substance: METHOTREXATE
  4. ORENCIA [Suspect]
     Active Substance: ABATACEPT
     Route: 058
  5. FOLIC ACID. [Concomitant]
     Active Substance: FOLIC ACID
  6. OSTELIN [Concomitant]
     Active Substance: ERGOCALCIFEROL
     Dosage: 1000, 1 DAILY

REACTIONS (2)
  - Dizziness [Unknown]
  - Renal impairment [Unknown]
